FAERS Safety Report 9538023 (Version 2)
Quarter: 2013Q4

REPORT INFORMATION
  Report Type: Spontaneous
  Country: JP (occurrence: JP)
  Receive Date: 20130919
  Receipt Date: 20131126
  Transmission Date: 20140711
  Serious: Yes (Hospitalization)
  Sender: FDA-Public Use
  Company Number: JP-009507513-1309JPN006266

PATIENT
  Age: 53 Year
  Sex: Female
  Weight: 73 kg

DRUGS (4)
  1. ESLAX [Suspect]
     Indication: NEUROMUSCULAR BLOCKING THERAPY
     Dosage: DAILY DOSAGE UNKNOWN
     Route: 042
  2. PROPOFOL [Concomitant]
     Indication: INDUCTION OF ANAESTHESIA
     Dosage: DAILY DOSAGE UNKNOWN
     Route: 042
  3. REMIFENTANIL HYDROCHLORIDE [Concomitant]
     Indication: GENERAL ANAESTHESIA
     Dosage: DAILY DOSAGE UNKNOWN
     Route: 042
  4. DESFLURANE [Concomitant]
     Indication: GENERAL ANAESTHESIA
     Dosage: DAILY DOSAGE UNKNOWN, FORMULATION: INHALATION STUFF.
     Route: 055

REACTIONS (1)
  - Laryngeal oedema [Recovered/Resolved]
